FAERS Safety Report 18809394 (Version 1)
Quarter: 2021Q1

REPORT INFORMATION
  Report Type: Spontaneous
  Country: US (occurrence: US)
  Receive Date: 20210129
  Receipt Date: 20210129
  Transmission Date: 20210419
  Serious: Yes (Hospitalization, Other)
  Sender: FDA-Public Use
  Company Number: US-PURDUE-USA-2020-0201372

PATIENT
  Sex: Male

DRUGS (4)
  1. OXYCODONE/ ACETAMINOPHEN TABLETS [Suspect]
     Active Substance: ACETAMINOPHEN\OXYCODONE HYDROCHLORIDE
     Indication: BACK PAIN
     Dosage: UNK
     Route: 048
  2. OXYCONTIN [Suspect]
     Active Substance: OXYCODONE HYDROCHLORIDE
     Indication: BACK PAIN
     Dosage: UNK
     Route: 048
  3. TRAMADOL. [Suspect]
     Active Substance: TRAMADOL
     Indication: BACK PAIN
     Dosage: UNK
     Route: 065
  4. BUPRENORPHINE TRANSDERMAL PATCH (SIMILAR TO NDA 21?306) [Suspect]
     Active Substance: BUPRENORPHINE
     Indication: BACK PAIN
     Dosage: UNK
     Route: 062

REACTIONS (14)
  - Decreased appetite [Unknown]
  - Nerve injury [Unknown]
  - Unevaluable event [Unknown]
  - Hypertension [Unknown]
  - Drug dependence [Unknown]
  - Headache [Unknown]
  - Diabetes mellitus [None]
  - Dizziness [Unknown]
  - Anxiety [Unknown]
  - Self esteem decreased [Unknown]
  - Mood swings [Unknown]
  - Depression [Unknown]
  - Drug tolerance [Unknown]
  - Diarrhoea [Unknown]
